FAERS Safety Report 7789073-6 (Version None)
Quarter: 2011Q3

REPORT INFORMATION
  Report Type: 
  Country: None (occurrence: None)
  Receive Date: 20110930
  Receipt Date: 20110926
  Transmission Date: 20111222
  Serious: Yes (Other)
  Sender: FDA-Public Use
  Company Number: US-JNJFOC-20110907746

PATIENT
  Sex: Female
  Weight: 61.69 kg

DRUGS (4)
  1. ULTRAM ER [Suspect]
     Indication: OSTEOARTHRITIS
     Dosage: ONCE DAILY
     Route: 048
     Dates: start: 20060101, end: 20110905
  2. AMITRIPTYLINE HCL [Concomitant]
     Indication: MIGRAINE
     Route: 048
     Dates: start: 20100101
  3. HUMALOG [Concomitant]
     Indication: DIABETES MELLITUS
     Route: 048
     Dates: start: 19810101
  4. PROZAC [Concomitant]
     Indication: DEPRESSION
     Route: 065
     Dates: start: 20050101

REACTIONS (3)
  - MUSCLE TWITCHING [None]
  - MYOCARDIAL INFARCTION [None]
  - WITHDRAWAL SYNDROME [None]
